FAERS Safety Report 4652600-1 (Version None)
Quarter: 2005Q2

REPORT INFORMATION
  Report Type: 
  Country: None (occurrence: None)
  Receive Date: 20050502
  Receipt Date: 20050413
  Transmission Date: 20051028
  Serious: Yes (Death, Life-Threatening, Other)
  Sender: FDA-Public Use
  Company Number: DE-2005-002760

PATIENT
  Age: 74 Year
  Sex: Female
  Weight: 67 kg

DRUGS (8)
  1. ULTRAVIST 370 [Suspect]
     Indication: ARTERIOGRAM CORONARY
     Dosage: 130 ML, 1 DOSE, INTRA-ARTERIAL
     Route: 013
     Dates: start: 20050224, end: 20050224
  2. BELOC-ZOC MITE (METOPROLOL SUCCINATE) [Concomitant]
  3. RAMIPRIL [Concomitant]
  4. DIGITOXIN TAB [Concomitant]
  5. ACETYLSALICYLIC ACID SRT [Concomitant]
  6. LOCOL (FLUVASTATIN SODIUM) [Concomitant]
  7. CORANGIN [Concomitant]
  8. CORVATON (MOLSIDOMINE) [Concomitant]

REACTIONS (7)
  - ARTERIOSPASM CORONARY [None]
  - BRADYCARDIA [None]
  - CARDIO-RESPIRATORY ARREST [None]
  - CARDIOGENIC SHOCK [None]
  - CORONARY ARTERY OCCLUSION [None]
  - DRUG RESISTANCE [None]
  - HYPOTENSION [None]
